FAERS Safety Report 5393804-2 (Version None)
Quarter: 2007Q3

REPORT INFORMATION
  Report Type: 
  Country: None (occurrence: None)
  Receive Date: 20070723
  Receipt Date: 20070717
  Transmission Date: 20080115
  Serious: Yes (Hospitalization)
  Sender: FDA-Public Use
  Company Number: FR-AVENTIS-200711471FR

PATIENT
  Age: 76 Year
  Sex: Male
  Weight: 65 kg

DRUGS (7)
  1. KETEK [Suspect]
     Route: 048
     Dates: start: 20070209
  2. MOXIFLOXACINE [Suspect]
     Route: 048
     Dates: start: 20070202
  3. NEXEN [Suspect]
     Route: 048
     Dates: start: 20070209, end: 20070226
  4. ACETAMINOPHEN [Concomitant]
     Route: 048
     Dates: start: 20070209
  5. AERIUS                             /01398501/ [Concomitant]
     Route: 048
  6. NOVATREX                           /00113801/ [Concomitant]
     Indication: RHEUMATOID ARTHRITIS
     Route: 048
     Dates: end: 20070226
  7. NIMESULIDE [Concomitant]

REACTIONS (2)
  - BONE MARROW FAILURE [None]
  - RENAL FAILURE [None]
